FAERS Safety Report 6112609-8 (Version None)
Quarter: 2009Q1

REPORT INFORMATION
  Report Type: 
  Country: None (occurrence: None)
  Receive Date: 20090312
  Receipt Date: 20090306
  Transmission Date: 20090719
  Serious: Yes (Death, Hospitalization)
  Sender: FDA-Public Use
  Company Number: CA-BAYER-200912952NA

PATIENT
  Age: 71 Year
  Sex: Female

DRUGS (1)
  1. SORAFENIB [Suspect]
     Indication: METASTASES TO LIVER
     Dosage: TOTAL DAILY DOSE: 400 MG  UNIT DOSE: 200 MG
     Route: 048
     Dates: start: 20090105

REACTIONS (6)
  - ASPARTATE AMINOTRANSFERASE INCREASED [None]
  - BREAST CANCER METASTATIC [None]
  - NAUSEA [None]
  - RESPIRATORY FAILURE [None]
  - URINARY TRACT INFECTION [None]
  - VOMITING [None]
